FAERS Safety Report 14327415 (Version 1)
Quarter: 2017Q4

REPORT INFORMATION
  Report Type: Spontaneous
  Country: FR (occurrence: FR)
  Receive Date: 20171227
  Receipt Date: 20171227
  Transmission Date: 20180321
  Serious: Yes (Other)
  Sender: FDA-Public Use
  Company Number: FR-AUROBINDO-AUR-APL-2017-47232

PATIENT
  Age: 75 Year
  Sex: Female

DRUGS (4)
  1. RIVASTIGMINE. [Suspect]
     Active Substance: RIVASTIGMINE
     Indication: DEMENTIA
     Dosage: TRANSDERMAL PATCH
  2. RIVASTIGMINE. [Suspect]
     Active Substance: RIVASTIGMINE
     Dosage: 4.5 MG, UNK
  3. PROPRANOLOL [Concomitant]
     Active Substance: PROPRANOLOL HYDROCHLORIDE
     Indication: HYPERTENSION
  4. PROPRANOLOL [Concomitant]
     Active Substance: PROPRANOLOL HYDROCHLORIDE
     Indication: HYPERTENSION

REACTIONS (2)
  - Unmasking of previously unidentified disease [Recovered/Resolved]
  - Accessory cardiac pathway [Recovered/Resolved]
